FAERS Safety Report 9425060 (Version 3)
Quarter: 2013Q3

REPORT INFORMATION
  Report Type: Spontaneous
  Country: ZA (occurrence: ZA)
  Receive Date: 20130729
  Receipt Date: 20130830
  Transmission Date: 20140515
  Serious: Yes (Death, Other)
  Sender: FDA-Public Use
  Company Number: ZA-PFIZER INC-2013217835

PATIENT
  Age: 86 Year
  Sex: Female

DRUGS (6)
  1. ADVIL [Suspect]
     Indication: PAIN
     Dosage: 1 ADVIL 400 LIQUI-GEL CAPSULE
     Route: 048
  2. ADVIL [Suspect]
     Indication: MUSCULOSKELETAL PAIN
  3. ADVIL [Suspect]
     Indication: PAIN IN EXTREMITY
  4. CELEBREX [Concomitant]
     Dosage: UNK
     Route: 048
     Dates: start: 201306
  5. ACETAMINOPHEN [Concomitant]
  6. RENITEC [Concomitant]
     Indication: HYPERTENSION
     Dosage: DAILY

REACTIONS (7)
  - Death [Fatal]
  - Convulsion [Unknown]
  - Wrong technique in drug usage process [Unknown]
  - Eating disorder [Unknown]
  - Throat irritation [Unknown]
  - Confusional state [Unknown]
  - Asthenia [Unknown]
